FAERS Safety Report 5774099-4 (Version None)
Quarter: 2008Q2

REPORT INFORMATION
  Report Type: 
  Country: None (occurrence: None)
  Receive Date: 20080616
  Receipt Date: 20080612
  Transmission Date: 20081010
  Serious: Yes (Other)
  Sender: FDA-Public Use
  Company Number: BE-ASTRAZENECA-2008AC01086

PATIENT
  Age: 61 Year
  Sex: Female
  Weight: 64 kg

DRUGS (3)
  1. ARIMIDEX [Suspect]
     Indication: BREAST CANCER
     Route: 048
     Dates: start: 20080101, end: 20080412
  2. XYZAL [Interacting]
     Indication: AURICULAR SWELLING
     Route: 048
     Dates: start: 20080407, end: 20080410
  3. DEXAMETHASONE TAB [Interacting]
     Indication: AURICULAR SWELLING
     Route: 048
     Dates: start: 20080407, end: 20080410

REACTIONS (3)
  - AURICULAR SWELLING [None]
  - DRUG INTERACTION [None]
  - URTICARIA [None]
